FAERS Safety Report 6394939-8 (Version None)
Quarter: 2009Q4

REPORT INFORMATION
  Report Type: 
  Country: None (occurrence: None)
  Receive Date: 20091009
  Receipt Date: 20091001
  Transmission Date: 20100525
  Serious: Yes (Hospitalization)
  Sender: FDA-Public Use
  Company Number: FR-PFIZER INC-2009276638

PATIENT
  Age: 22 Year

DRUGS (7)
  1. ZYVOXID [Suspect]
     Dosage: 600 MG, 2X/DAY
     Route: 048
     Dates: start: 20090812, end: 20090819
  2. TRIFLUCAN [Suspect]
     Dosage: UNK
     Dates: start: 20090806, end: 20090822
  3. METRONIDAZOLE AND METRONIDAZOLE BENZOATE AND METRONIDAZOLE HYDROCHLORI [Suspect]
     Dosage: UNK
     Dates: start: 20090729, end: 20090809
  4. METRONIDAZOLE AND METRONIDAZOLE BENZOATE AND METRONIDAZOLE HYDROCHLORI [Suspect]
     Dosage: UNK
     Dates: start: 20090818, end: 20090827
  5. AUGMENTIN [Suspect]
     Dosage: UNK
     Route: 048
     Dates: start: 20090725, end: 20090803
  6. CIFLOX [Suspect]
     Dosage: UNK
     Route: 042
     Dates: start: 20090803, end: 20090817
  7. TAZOCILLINE [Suspect]
     Dosage: UNK
     Dates: start: 20090803, end: 20090818

REACTIONS (1)
  - JAUNDICE CHOLESTATIC [None]
